FAERS Safety Report 17933761 (Version 1)
Quarter: 2020Q2

REPORT INFORMATION
  Report Type: Spontaneous
  Country: US (occurrence: US)
  Receive Date: 20200623
  Receipt Date: 20200623
  Transmission Date: 20200714
  Serious: No
  Sender: FDA-Public Use
  Company Number: US-ELI_LILLY_AND_COMPANY-US202006007513

PATIENT
  Sex: Female

DRUGS (2)
  1. REYVOW [Suspect]
     Active Substance: LASMIDITAN
     Dosage: 50 MG
     Route: 065
  2. REYVOW [Suspect]
     Active Substance: LASMIDITAN
     Indication: PRODUCT USED FOR UNKNOWN INDICATION
     Dosage: 100 MG, UNKNOWN
     Route: 065

REACTIONS (2)
  - Feeling drunk [Unknown]
  - Therapeutic product effect decreased [Unknown]
